FAERS Safety Report 9991360 (Version 1)
Quarter: 2014Q1

REPORT INFORMATION
  Report Type: Report from Study
  Country: US (occurrence: US)
  Receive Date: 20140310
  Receipt Date: 20140310
  Transmission Date: 20141002
  Serious: No
  Sender: FDA-Public Use
  Company Number: US-ABBVIE-13P-163-1129997-00

PATIENT
  Age: 17 Year
  Sex: Female

DRUGS (9)
  1. HUMIRA [Suspect]
     Indication: CROHN^S DISEASE
     Route: 058
     Dates: start: 20130505
  2. USANA [Concomitant]
     Indication: PRODUCT USED FOR UNKNOWN INDICATION
  3. BIOTIN [Concomitant]
     Indication: PRODUCT USED FOR UNKNOWN INDICATION
  4. CO Q [Concomitant]
     Indication: PRODUCT USED FOR UNKNOWN INDICATION
  5. BIOMEGA FISH OIL [Concomitant]
     Indication: PRODUCT USED FOR UNKNOWN INDICATION
  6. AVIANE [Concomitant]
     Indication: PRODUCT USED FOR UNKNOWN INDICATION
  7. IRON [Concomitant]
     Indication: PRODUCT USED FOR UNKNOWN INDICATION
  8. MEGAANTIOXIDANTS [Concomitant]
     Indication: PRODUCT USED FOR UNKNOWN INDICATION
  9. PROFLAVANOL C [Concomitant]
     Indication: PRODUCT USED FOR UNKNOWN INDICATION

REACTIONS (3)
  - Infectious mononucleosis [Unknown]
  - Nausea [Unknown]
  - Headache [Unknown]
